FAERS Safety Report 5573132-2 (Version None)
Quarter: 2007Q4

REPORT INFORMATION
  Report Type: 
  Country: None (occurrence: None)
  Receive Date: 20071220
  Receipt Date: 20071220
  Transmission Date: 20080405
  Serious: Yes (Hospitalization)
  Sender: FDA-Public Use
  Company Number: None

PATIENT
  Age: 89 Year
  Sex: Male

DRUGS (3)
  1. FUROSEMIDE [Suspect]
     Indication: HYPERTENSION
     Dosage: 40MG  BID  PO
     Route: 048
     Dates: start: 19950720, end: 20071219
  2. FUROSEMIDE [Suspect]
     Indication: MINERAL SUPPLEMENTATION
     Dosage: 40MG  BID  PO
     Route: 048
     Dates: start: 19950720, end: 20071219
  3. POTASSIUM [Suspect]
     Dosage: 20MEQ  BID  PO
     Route: 048
     Dates: start: 20071101, end: 20071219

REACTIONS (2)
  - HYPERKALAEMIA [None]
  - RENAL FAILURE ACUTE [None]
